FAERS Safety Report 23916675 (Version 6)
Quarter: 2024Q3

REPORT INFORMATION
  Report Type: Report from Study
  Country: GB (occurrence: GB)
  Receive Date: 20240529
  Receipt Date: 20240827
  Transmission Date: 20241017
  Serious: Yes (Hospitalization)
  Sender: APELLIS PHARMACEUTICALS
  Company Number: GB-BIOVITRUM-2024-GB-000295

PATIENT

DRUGS (4)
  1. PEGCETACOPLAN [Suspect]
     Active Substance: PEGCETACOPLAN
     Indication: Paroxysmal nocturnal haemoglobinuria
     Dosage: 1080 MILLIGRAM
     Route: 058
     Dates: start: 202311
  2. PEGCETACOPLAN [Suspect]
     Active Substance: PEGCETACOPLAN
     Dosage: 1080 MILLIGRAM
     Route: 058
     Dates: start: 202312
  3. PEGCETACOPLAN [Suspect]
     Active Substance: PEGCETACOPLAN
     Dosage: 1080 MG TWICE A WEEK
     Route: 058
     Dates: start: 202311
  4. PEGCETACOPLAN [Suspect]
     Active Substance: PEGCETACOPLAN
     Dosage: EVERY 3 DAYS RATHER THAN TWICE A WEEK
     Route: 058
     Dates: start: 202311

REACTIONS (13)
  - Pyrexia [Recovered/Resolved]
  - Chromaturia [Not Recovered/Not Resolved]
  - Diarrhoea [Unknown]
  - Haemoglobin abnormal [Unknown]
  - Cough [Unknown]
  - Sputum discoloured [Unknown]
  - Headache [Not Recovered/Not Resolved]
  - Fatigue [Not Recovered/Not Resolved]
  - Full blood count decreased [Not Recovered/Not Resolved]
  - Infusion site discharge [Unknown]
  - Off label use [Unknown]
  - Pallor [Unknown]
  - Asthenia [Not Recovered/Not Resolved]

NARRATIVE: CASE EVENT DATE: 20240522
